FAERS Safety Report 8407821-9 (Version None)
Quarter: 2012Q2

REPORT INFORMATION
  Report Type: 
  Country: None (occurrence: None)
  Receive Date: 20120604
  Receipt Date: 20120529
  Transmission Date: 20120825
  Serious: Yes (Other)
  Sender: FDA-Public Use
  Company Number: PHHY2012GB045908

PATIENT
  Age: 60 Year
  Sex: Female

DRUGS (2)
  1. ALENDRONATE SODIUM [Suspect]
     Indication: PROPHYLAXIS
     Dates: start: 20080101
  2. RISEDRONATE SODIUM [Suspect]
     Indication: PROPHYLAXIS
     Dosage: 35 MG, QW
     Route: 048

REACTIONS (4)
  - FALL [None]
  - MUSCULOSKELETAL STIFFNESS [None]
  - ATYPICAL FEMUR FRACTURE [None]
  - ARTHRALGIA [None]
